FAERS Safety Report 10948560 (Version 1)
Quarter: 2015Q1

REPORT INFORMATION
  Report Type: Spontaneous
  Country: CA (occurrence: CA)
  Receive Date: 20150324
  Receipt Date: 20150324
  Transmission Date: 20150721
  Serious: Yes (Hospitalization, Other)
  Sender: FDA-Public Use
  Company Number: CA-JNJFOC-20150209587

PATIENT
  Age: 78 Year
  Sex: Male
  Weight: 103 kg

DRUGS (3)
  1. LANSOPRAZOLE. [Concomitant]
     Active Substance: LANSOPRAZOLE
     Route: 065
  2. XARELTO [Suspect]
     Active Substance: RIVAROXABAN
     Indication: CEREBROVASCULAR ACCIDENT PROPHYLAXIS
     Route: 048
     Dates: start: 20140901, end: 20140908
  3. XARELTO [Suspect]
     Active Substance: RIVAROXABAN
     Indication: ATRIAL FIBRILLATION
     Route: 048
     Dates: start: 20140901, end: 20140908

REACTIONS (6)
  - Upper gastrointestinal haemorrhage [Recovered/Resolved]
  - Dyspnoea [Unknown]
  - Haemoglobin decreased [Unknown]
  - Wheezing [Unknown]
  - Hypotension [Unknown]
  - Pneumonia [Unknown]

NARRATIVE: CASE EVENT DATE: 201409
